FAERS Safety Report 8052128-5 (Version None)
Quarter: 2012Q1

REPORT INFORMATION
  Report Type: 
  Country: None (occurrence: None)
  Receive Date: 20120118
  Receipt Date: 20120113
  Transmission Date: 20120608
  Serious: No
  Sender: FDA-Public Use
  Company Number: US-PFIZER INC-2012010986

PATIENT
  Age: 51 Year
  Sex: Male
  Weight: 145 kg

DRUGS (6)
  1. LYRICA [Suspect]
     Indication: SPINAL CORD INFECTION
  2. TRAZODONE [Concomitant]
     Dosage: 300 MG, 1X/DAY
  3. OXYCODONE [Concomitant]
     Dosage: UNK
  4. CELEXA [Concomitant]
     Dosage: 20 MG, 1X/DAY
  5. LYRICA [Suspect]
     Indication: PAIN IN EXTREMITY
  6. LYRICA [Suspect]
     Indication: OEDEMA
     Dosage: UNK
     Dates: start: 20111122

REACTIONS (1)
  - OEDEMA PERIPHERAL [None]
